FAERS Safety Report 6275411-2 (Version None)
Quarter: 2009Q3

REPORT INFORMATION
  Report Type: 
  Country: None (occurrence: None)
  Receive Date: 20090721
  Receipt Date: 20090713
  Transmission Date: 20100115
  Serious: Yes (Other)
  Sender: FDA-Public Use
  Company Number: CN-ASTRAZENECA-2008AP09810

PATIENT
  Age: 57 Year
  Sex: Female

DRUGS (3)
  1. NEXIUM [Suspect]
     Indication: GASTROOESOPHAGEAL REFLUX DISEASE
     Route: 048
     Dates: start: 20080901, end: 20081113
  2. NEXIUM [Suspect]
     Route: 048
     Dates: start: 20090601, end: 20090701
  3. TOLYNICATE AND NAPHTHYLACETIC ACID TABLETS [Concomitant]
     Route: 048
     Dates: start: 20080901, end: 20081113

REACTIONS (4)
  - LYMPHADENOPATHY [None]
  - NEUTROPHIL PERCENTAGE DECREASED [None]
  - POLYMYOSITIS [None]
  - TRANSAMINASES INCREASED [None]
